FAERS Safety Report 19218360 (Version 1)
Quarter: 2021Q2

REPORT INFORMATION
  Report Type: Spontaneous
  Country: US (occurrence: US)
  Receive Date: 20210505
  Receipt Date: 20210505
  Transmission Date: 20210717
  Serious: Yes (Other)
  Sender: FDA-Public Use
  Company Number: US-ALXN-A202105177

PATIENT
  Sex: Female

DRUGS (2)
  1. SOLIRIS [Suspect]
     Active Substance: ECULIZUMAB
     Indication: OFF LABEL USE
  2. SOLIRIS [Suspect]
     Active Substance: ECULIZUMAB
     Indication: THROMBOTIC MICROANGIOPATHY
     Dosage: UNK UNK, QW (900, UNITS NOT SPECIFIED)
     Route: 042

REACTIONS (5)
  - Thrombotic microangiopathy [Not Recovered/Not Resolved]
  - Blood creatinine abnormal [Unknown]
  - Off label use [Unknown]
  - Platelet count abnormal [Unknown]
  - Disease recurrence [Not Recovered/Not Resolved]
